FAERS Safety Report 12274580 (Version 1)
Quarter: 2016Q2

REPORT INFORMATION
  Report Type: Spontaneous
  Country: US (occurrence: US)
  Receive Date: 20160415
  Receipt Date: 20160415
  Transmission Date: 20160815
  Serious: No
  Sender: FDA-Public Use
  Company Number: US-ALLERGAN-1507049US

PATIENT
  Age: 65 Year
  Sex: Female

DRUGS (3)
  1. ADVAIR HFA [Concomitant]
     Active Substance: FLUTICASONE PROPIONATE\SALMETEROL XINAFOATE
     Indication: PRODUCT USED FOR UNKNOWN INDICATION
  2. LUMIGAN [Suspect]
     Active Substance: BIMATOPROST
     Indication: GLAUCOMA
     Dosage: 1 GTT TO EACH EYE AT DINNER TIME
     Route: 047
     Dates: start: 201504, end: 20150518
  3. LUMIGAN [Suspect]
     Active Substance: BIMATOPROST
     Dosage: 1 GTT TO EACH EYE AT BEDTIME
     Route: 047
     Dates: start: 20150311, end: 201504

REACTIONS (3)
  - Insomnia [Recovered/Resolved]
  - Eye irritation [Recovered/Resolved]
  - Photophobia [Recovered/Resolved]

NARRATIVE: CASE EVENT DATE: 20150311
